FAERS Safety Report 15745683 (Version 1)
Quarter: 2018Q4

REPORT INFORMATION
  Report Type: Spontaneous
  Country: MY (occurrence: MY)
  Receive Date: 20181220
  Receipt Date: 20181220
  Transmission Date: 20190205
  Serious: Yes (Other)
  Sender: FDA-Public Use
  Company Number: MY-BAYER-2018-239667

PATIENT
  Sex: Female

DRUGS (2)
  1. MIRENA [Suspect]
     Active Substance: LEVONORGESTREL
     Indication: ENDOMETRIOSIS
     Dosage: 20 MCG/24HR, CONT
     Route: 015
  2. VISANNE [Suspect]
     Active Substance: DIENOGEST
     Indication: ENDOMETRIOSIS
     Route: 048

REACTIONS (3)
  - Product use in unapproved indication [None]
  - Off label use [None]
  - Hydronephrosis [Recovering/Resolving]
